FAERS Safety Report 8819757 (Version 1)
Quarter: 2012Q4

REPORT INFORMATION
  Report Type: 
  Country: US (occurrence: US)
  Receive Date: 20121001
  Receipt Date: 20121001
  Transmission Date: 20130627
  Serious: Yes (Death, Other)
  Sender: FDA-Public Use
  Company Number: US-ROCHE-1129501

PATIENT
  Sex: Female
  Weight: 82.63 kg

DRUGS (8)
  1. HERCEPTIN [Suspect]
     Indication: BREAST CANCER
     Dosage: loading dose
     Route: 065
     Dates: start: 199908
  2. HERCEPTIN [Suspect]
     Dosage: maintenance dose
     Route: 065
  3. XELODA [Suspect]
     Indication: BREAST CANCER
     Route: 065
  4. TAXOTERE [Concomitant]
     Route: 065
  5. 5-FLUOROURACIL [Concomitant]
     Route: 065
     Dates: start: 1997
  6. 5-FLUOROURACIL [Concomitant]
     Route: 041
  7. ADRIAMYCIN [Concomitant]
     Route: 065
     Dates: start: 1997
  8. CYTOXAN [Concomitant]
     Route: 065
     Dates: start: 1997

REACTIONS (4)
  - Death [Fatal]
  - Disease progression [Unknown]
  - Dyspnoea [Unknown]
  - Fluid retention [Unknown]
